FAERS Safety Report 14989428 (Version 4)
Quarter: 2018Q3

REPORT INFORMATION
  Report Type: Spontaneous
  Country: US (occurrence: US)
  Receive Date: 20180608
  Receipt Date: 20180917
  Transmission Date: 20181010
  Serious: Yes (Death, Hospitalization, Other)
  Sender: FDA-Public Use
  Company Number: US-BRISTOL-MYERS SQUIBB COMPANY-BMS-2018-053203

PATIENT
  Age: 92 Year
  Sex: Female

DRUGS (1)
  1. OPDIVO [Suspect]
     Active Substance: NIVOLUMAB
     Indication: SQUAMOUS CELL CARCINOMA OF SKIN
     Dosage: 170 MG, Q2WK
     Route: 042
     Dates: start: 20170404, end: 20180426

REACTIONS (6)
  - Dyspnoea [Unknown]
  - Product use in unapproved indication [Unknown]
  - Skin cancer [Unknown]
  - Diarrhoea [Unknown]
  - Choking [Unknown]
  - Myocardial infarction [Fatal]

NARRATIVE: CASE EVENT DATE: 20180502
